FAERS Safety Report 5858594-5 (Version None)
Quarter: 2008Q3

REPORT INFORMATION
  Report Type: 
  Country: None (occurrence: None)
  Receive Date: 20080818
  Receipt Date: 20080716
  Transmission Date: 20090109
  Serious: No
  Sender: FDA-Public Use
  Company Number: WAES 0807USA03268

PATIENT
  Age: 63 Year
  Sex: Female

DRUGS (9)
  1. JANUVIA [Suspect]
     Indication: DIABETES MELLITUS
     Dosage: 100 MG/DAILY/PO
     Route: 048
     Dates: start: 20080704, end: 20080715
  2. AVALIDE [Concomitant]
  3. AVANDIA [Concomitant]
  4. BYETTA [Concomitant]
  5. PRAVACHOL [Concomitant]
  6. CARVEDILOL [Concomitant]
  7. GLIMEPIRIDE [Concomitant]
  8. METFORMIN [Concomitant]
  9. TAMOXIFEN CITRATE [Concomitant]

REACTIONS (6)
  - DIARRHOEA [None]
  - DRY THROAT [None]
  - HEADACHE [None]
  - LACRIMATION INCREASED [None]
  - STOMACH DISCOMFORT [None]
  - THROAT IRRITATION [None]
